FAERS Safety Report 12926088 (Version 2)
Quarter: 2017Q2

REPORT INFORMATION
  Report Type: Spontaneous
  Country: US (occurrence: US)
  Receive Date: 20161108
  Receipt Date: 20170503
  Transmission Date: 20170830
  Serious: No
  Sender: FDA-Public Use
  Company Number: US-SA-2016SA169937

PATIENT
  Age: 76 Year
  Sex: Female

DRUGS (6)
  1. PRALUENT [Suspect]
     Active Substance: ALIROCUMAB
     Indication: BLOOD CHOLESTEROL
     Dosage: DOSE:75 MILLIGRAM(S)/MILLILITRE
     Route: 065
     Dates: start: 201608
  2. PRALUENT [Suspect]
     Active Substance: ALIROCUMAB
     Indication: BLOOD CHOLESTEROL
     Dosage: DOSE:75 MILLIGRAM(S)/MILLILITRE
     Route: 065
     Dates: start: 201608
  3. PRALUENT [Suspect]
     Active Substance: ALIROCUMAB
     Indication: BLOOD CHOLESTEROL
     Dosage: DOSE:75 MILLIGRAM(S)/MILLILITRE
     Route: 065
     Dates: start: 201608
  4. ALIROCUMAB PREFILLED PEN [Suspect]
     Active Substance: ALIROCUMAB
     Indication: BLOOD CHOLESTEROL
     Dates: start: 201608
  5. ALIROCUMAB PREFILLED PEN [Suspect]
     Active Substance: ALIROCUMAB
     Indication: BLOOD CHOLESTEROL
     Dates: start: 201608
  6. ALIROCUMAB PREFILLED PEN [Suspect]
     Active Substance: ALIROCUMAB
     Indication: BLOOD CHOLESTEROL
     Dates: start: 201608

REACTIONS (10)
  - Incorrect route of drug administration [Unknown]
  - Nasal congestion [Not Recovered/Not Resolved]
  - Influenza like illness [Not Recovered/Not Resolved]
  - Cough [Not Recovered/Not Resolved]
  - Injection site haemorrhage [Not Recovered/Not Resolved]
  - Injury associated with device [Unknown]
  - Injection site bruising [Not Recovered/Not Resolved]
  - Abdominal distension [Not Recovered/Not Resolved]
  - Rhinorrhoea [Not Recovered/Not Resolved]
  - Device use issue [Unknown]
